APPROVED DRUG PRODUCT: PREDNISOLONE
Active Ingredient: PREDNISOLONE
Strength: 15MG/5ML
Dosage Form/Route: SOLUTION;ORAL
Application: A040775 | Product #001 | TE Code: AA
Applicant: LANNETT CO INC
Approved: Sep 21, 2007 | RLD: No | RS: No | Type: RX